FAERS Safety Report 10110924 (Version 1)
Quarter: 2014Q2

REPORT INFORMATION
  Report Type: Spontaneous
  Country: US (occurrence: None)
  Receive Date: 20140424
  Receipt Date: 20140424
  Transmission Date: 20141212
  Serious: Yes (Hospitalization)
  Sender: FDA-Public Use
  Company Number: None

PATIENT
  Age: 47 Year
  Sex: Female
  Weight: 60.78 kg

DRUGS (1)
  1. RIFAMPIN [Suspect]
     Indication: LUNG INFECTION
     Dosage: MON, WED, FRI
     Route: 048
     Dates: start: 20130417, end: 20140221

REACTIONS (4)
  - Pyrexia [None]
  - Head injury [None]
  - Vomiting [None]
  - Loss of consciousness [None]
